FAERS Safety Report 13222049 (Version 2)
Quarter: 2018Q1

REPORT INFORMATION
  Report Type: Other
  Country: US (occurrence: US)
  Receive Date: 20170211
  Receipt Date: 20180130
  Transmission Date: 20180508
  Serious: No
  Sender: FDA-Public Use
  Company Number: US-ACORDA-ACO_132156_2016

PATIENT
  Age: 68 Year
  Sex: Female

DRUGS (2)
  1. AMPYRA [Suspect]
     Active Substance: DALFAMPRIDINE
     Indication: GAIT DISTURBANCE
     Dosage: 10 MG, Q 12 HRS
     Route: 065
     Dates: start: 2015, end: 20170417
  2. AMPYRA [Suspect]
     Active Substance: DALFAMPRIDINE
     Dosage: 10 MG, QD
     Route: 065

REACTIONS (5)
  - Drug effect incomplete [Unknown]
  - Drug ineffective [Unknown]
  - Dry mouth [Recovered/Resolved]
  - Adverse event [Recovered/Resolved]
  - Therapeutic response unexpected [Unknown]

NARRATIVE: CASE EVENT DATE: 20150716
